FAERS Safety Report 5378961-6 (Version None)
Quarter: 2007Q3

REPORT INFORMATION
  Report Type: 
  Country: None (occurrence: None)
  Receive Date: 20070705
  Receipt Date: 20070625
  Transmission Date: 20080115
  Serious: Yes (Other)
  Sender: FDA-Public Use
  Company Number: IN-ASTRAZENECA-2007AC01185

PATIENT
  Age: 53 Year
  Sex: Male
  Weight: 48 kg

DRUGS (2)
  1. BUPIVACAINE [Suspect]
     Indication: ANALGESIA
     Route: 037
  2. OXYGEN [Concomitant]
     Route: 055

REACTIONS (1)
  - BRONCHOSPASM [None]
